FAERS Safety Report 24450699 (Version 1)
Quarter: 2024Q4

REPORT INFORMATION
  Report Type: Spontaneous
  Country: US (occurrence: None)
  Receive Date: 20241017
  Receipt Date: 20241017
  Transmission Date: 20250115
  Serious: Yes (Other)
  Sender: Public
  Company Number: None

PATIENT
  Sex: Female

DRUGS (3)
  1. MYFORTIC [Suspect]
     Active Substance: MYCOPHENOLATE SODIUM
     Indication: Renal transplant
     Route: 048
     Dates: start: 20180125
  2. CALCIUM CIT/TAB VIT D [Concomitant]
  3. PROGRAF [Concomitant]

REACTIONS (1)
  - Emergency care [None]
